FAERS Safety Report 9708787 (Version 2)
Quarter: 2013Q4

REPORT INFORMATION
  Report Type: Spontaneous
  Country: DK (occurrence: JP)
  Receive Date: 20131125
  Receipt Date: 20131209
  Transmission Date: 20140711
  Serious: Yes (Other)
  Sender: FDA-Public Use
  Company Number: JP-FRI-1000051631

PATIENT
  Age: 70 Year
  Sex: Male

DRUGS (1)
  1. LEXAPRO [Suspect]
     Dosage: 10 MG
     Route: 048
     Dates: end: 20131021

REACTIONS (1)
  - Dizziness postural [Recovered/Resolved]
